FAERS Safety Report 5575248-3 (Version None)
Quarter: 2007Q4

REPORT INFORMATION
  Report Type: 
  Country: None (occurrence: None)
  Receive Date: 20071221
  Receipt Date: 20071207
  Transmission Date: 20080405
  Serious: Yes (Other)
  Sender: FDA-Public Use
  Company Number: 8028499

PATIENT
  Age: 36 Year
  Sex: Female

DRUGS (6)
  1. KEPPRA [Suspect]
     Indication: EPILEPSY
     Dosage: 3750 MG/D PO
     Route: 048
     Dates: start: 20020301, end: 20060601
  2. KEPPRA [Suspect]
     Indication: EPILEPSY
     Dosage: /D PO
     Route: 048
     Dates: start: 20060601
  3. LAMICTAL [Concomitant]
  4. PROCARDIA [Concomitant]
  5. FOLIC ACID [Concomitant]
  6. PENATAL VITAMINS [Concomitant]

REACTIONS (7)
  - CONDITION AGGRAVATED [None]
  - CONVULSION [None]
  - DRUG EXPOSURE DURING PREGNANCY [None]
  - FOETAL GROWTH RETARDATION [None]
  - PREGNANCY [None]
  - PREMATURE BABY [None]
  - UTERINE LEIOMYOMA [None]
